FAERS Safety Report 9465526 (Version 4)
Quarter: 2013Q4

REPORT INFORMATION
  Report Type: Spontaneous
  Country: US (occurrence: US)
  Receive Date: 20130820
  Receipt Date: 20131101
  Transmission Date: 20140711
  Serious: Yes (Hospitalization, Other)
  Sender: FDA-Public Use
  Company Number: US-AMGEN-USASP2013057063

PATIENT
  Age: 47 Year
  Sex: Male
  Weight: 83.9 kg

DRUGS (10)
  1. NPLATE [Suspect]
     Indication: IMMUNE THROMBOCYTOPENIC PURPURA
     Dosage: 2 MUG/KG, UNK
     Route: 065
     Dates: start: 20120608
  2. NPLATE [Suspect]
     Route: 065
  3. PANTOPRAZOLE [Concomitant]
     Indication: GASTRITIS
     Dosage: 40 MG, ONCE
     Route: 048
  4. ZOLPIDEM [Concomitant]
     Indication: INSOMNIA
     Dosage: 5 MG, ONCE
     Route: 048
  5. AZATHIOPRINE [Concomitant]
  6. SULFASALAZINE [Concomitant]
  7. IMMUNOGLOBULINS [Concomitant]
  8. RITUXAN [Concomitant]
  9. CORTICOSTEROIDS [Concomitant]
  10. FERROUS SULPHATE                   /00023503/ [Concomitant]
     Indication: IRON DEFICIENCY
     Dosage: 325 MG, UNK
     Route: 048

REACTIONS (4)
  - Thrombocytopenia [Not Recovered/Not Resolved]
  - Therapeutic response decreased [Unknown]
  - Rash maculo-papular [Recovered/Resolved]
  - Arthralgia [Recovered/Resolved]
